FAERS Safety Report 8843047 (Version 2)
Quarter: 2012Q4

REPORT INFORMATION
  Report Type: Report from Study
  Country: DE (occurrence: DE)
  Receive Date: 20121016
  Receipt Date: 20121024
  Transmission Date: 20130627
  Serious: Yes (Hospitalization)
  Sender: FDA-Public Use
  Company Number: DE-GLAXOSMITHKLINE-B0837573A

PATIENT
  Age: 35 Year
  Sex: Female
  Weight: 72 kg

DRUGS (4)
  1. LAPATINIB [Suspect]
     Indication: BREAST CANCER
     Dosage: 500MG Per day
     Route: 048
     Dates: start: 20120815, end: 20121004
  2. MYOCET [Suspect]
     Indication: BREAST CANCER
     Route: 042
     Dates: start: 20120815, end: 20121015
  3. PACLITAXEL [Suspect]
     Indication: BREAST CANCER
     Route: 042
     Dates: start: 20120815, end: 20121015
  4. TRASTUZUMAB [Suspect]
     Indication: BREAST CANCER
     Route: 042
     Dates: start: 20120815

REACTIONS (1)
  - Encephalitis [Recovered/Resolved]
